FAERS Safety Report 20660617 (Version 1)
Quarter: 2022Q1

REPORT INFORMATION
  Report Type: Spontaneous
  Country: CN (occurrence: CN)
  Receive Date: 20220331
  Receipt Date: 20220331
  Transmission Date: 20220423
  Serious: Yes (Hospitalization)
  Sender: FDA-Public Use
  Company Number: CN-BRISTOL-MYERS SQUIBB COMPANY-2022-012318

PATIENT
  Age: 70 Year
  Sex: Female
  Weight: 67 kg

DRUGS (4)
  1. AZACITIDINE [Suspect]
     Active Substance: AZACITIDINE
     Indication: Myelodysplastic syndrome
     Dosage: DAYS 1-7 OF A 28 DAY CYCLE
     Route: 058
     Dates: start: 20211124
  2. VENETOCLAX [Suspect]
     Active Substance: VENETOCLAX
     Indication: Myelodysplastic syndrome
     Dosage: 14 DAYS ON, 14 DAYS OFF
     Route: 048
     Dates: start: 20211124
  3. FELODIPINE [Concomitant]
     Active Substance: FELODIPINE
     Indication: Hypertension
     Route: 048
     Dates: start: 2016
  4. COVID-19 VACCINE [Concomitant]
     Indication: Prophylaxis
     Dates: start: 2022

REACTIONS (1)
  - Gingivitis [Recovered/Resolved]

NARRATIVE: CASE EVENT DATE: 20220207
